FAERS Safety Report 14599170 (Version 1)
Quarter: 2018Q1

REPORT INFORMATION
  Report Type: Spontaneous
  Country: GB (occurrence: GB)
  Receive Date: 20180305
  Receipt Date: 20180305
  Transmission Date: 20180509
  Serious: Yes (Other)
  Sender: FDA-Public Use
  Company Number: GB-OTSUKA-2018_004921

PATIENT
  Sex: Male

DRUGS (1)
  1. ABILIFY MAINTENA [Suspect]
     Active Substance: ARIPIPRAZOLE
     Indication: PRODUCT USED FOR UNKNOWN INDICATION
     Dosage: 150 MG, UNK (SEVERAL INJECTIONS)
     Route: 065

REACTIONS (14)
  - Pollakiuria [Unknown]
  - Sleep disorder [Unknown]
  - Drooling [Unknown]
  - Vision blurred [Unknown]
  - Dyspnoea [Unknown]
  - Musculoskeletal stiffness [Unknown]
  - Tongue movement disturbance [Unknown]
  - Abnormal weight gain [Unknown]
  - Dyskinesia [Unknown]
  - Suicidal ideation [Unknown]
  - Tremor [Unknown]
  - Joint stiffness [Unknown]
  - Diarrhoea [Unknown]
  - Akathisia [Unknown]
